FAERS Safety Report 21583585 (Version 1)
Quarter: 2022Q4

REPORT INFORMATION
  Report Type: Spontaneous
  Country: JP (occurrence: JP)
  Receive Date: 20221111
  Receipt Date: 20221111
  Transmission Date: 20230113
  Serious: Yes (Hospitalization)
  Sender: FDA-Public Use
  Company Number: JP-ARBOR PHARMACEUTICALS, LLC-JP-2022ARB002813

PATIENT
  Age: 41 Year
  Sex: Female

DRUGS (2)
  1. IVERMECTIN [Suspect]
     Active Substance: IVERMECTIN
     Indication: COVID-19 prophylaxis
     Dosage: 12 MG
     Route: 048
     Dates: start: 2021
  2. IVERMECTIN [Suspect]
     Active Substance: IVERMECTIN
     Dosage: 36 MG
     Route: 048
     Dates: start: 202203

REACTIONS (2)
  - Liver disorder [Recovered/Resolved]
  - COVID-19 pneumonia [Recovered/Resolved]

NARRATIVE: CASE EVENT DATE: 20220406
